FAERS Safety Report 9247634 (Version 2)
Quarter: 2013Q2

REPORT INFORMATION
  Report Type: Spontaneous
  Country: GB (occurrence: GB)
  Receive Date: 20130423
  Receipt Date: 20130517
  Transmission Date: 20140414
  Serious: Yes (Other)
  Sender: FDA-Public Use
  Company Number: GB-ELI_LILLY_AND_COMPANY-GB201304004430

PATIENT
  Age: 49 Year
  Sex: Female

DRUGS (4)
  1. HUMALOG LISPRO [Suspect]
     Indication: TYPE 2 DIABETES MELLITUS
     Dosage: UNK, TID
     Route: 058
  2. BYETTA [Concomitant]
  3. LANTUS [Concomitant]
  4. METFORMIN [Concomitant]

REACTIONS (3)
  - Lacunar infarction [Unknown]
  - Memory impairment [Not Recovered/Not Resolved]
  - Blood glucose increased [Unknown]
